FAERS Safety Report 6196890-5 (Version None)
Quarter: 2009Q2

REPORT INFORMATION
  Report Type: 
  Country: None (occurrence: None)
  Receive Date: 20090520
  Receipt Date: 20090514
  Transmission Date: 20091009
  Serious: Yes (Hospitalization)
  Sender: FDA-Public Use
  Company Number: US-BAYER-200911440BCC

PATIENT
  Age: 85 Year
  Sex: Male
  Weight: 68 kg

DRUGS (3)
  1. ASPIRIN [Suspect]
     Indication: DRUG USE FOR UNKNOWN INDICATION
     Dosage: TOTAL DAILY DOSE: 325 MG  UNIT DOSE: 325 MG
     Route: 048
     Dates: start: 20040101, end: 20070703
  2. ASPIRIN [Suspect]
     Dosage: UNIT DOSE: 81 MG
     Dates: start: 20090401
  3. DIOVAN [Concomitant]

REACTIONS (5)
  - ANAEMIA [None]
  - ASTHENIA [None]
  - HIATUS HERNIA [None]
  - MELAENA [None]
  - OESOPHAGEAL ULCER HAEMORRHAGE [None]
